FAERS Safety Report 15838777 (Version 2)
Quarter: 2019Q1

REPORT INFORMATION
  Report Type: Spontaneous
  Country: EE (occurrence: EE)
  Receive Date: 20190117
  Receipt Date: 20190215
  Transmission Date: 20190417
  Serious: Yes (Death, Other)
  Sender: FDA-Public Use
  Company Number: EE-ABBVIE-19K-221-2629311-00

PATIENT
  Age: 57 Year
  Sex: Male
  Weight: 73 kg

DRUGS (5)
  1. CYKLOKAPRON [Concomitant]
     Active Substance: TRANEXAMIC ACID
     Indication: PRODUCT USED FOR UNKNOWN INDICATION
     Route: 048
     Dates: start: 20180525
  2. CYKLOKAPRON [Concomitant]
     Active Substance: TRANEXAMIC ACID
     Route: 048
  3. ACICLOVIR [Concomitant]
     Active Substance: ACYCLOVIR
     Indication: PRODUCT USED FOR UNKNOWN INDICATION
     Route: 048
     Dates: start: 20180601
  4. DALACIN [Concomitant]
     Active Substance: CLINDAMYCIN
     Indication: PRODUCT USED FOR UNKNOWN INDICATION
     Route: 048
     Dates: start: 20180622, end: 20180629
  5. VENCLYXTO [Suspect]
     Active Substance: VENETOCLAX
     Indication: CHRONIC LYMPHOCYTIC LEUKAEMIA
     Route: 048
     Dates: start: 20180525, end: 201807

REACTIONS (7)
  - Laryngeal squamous cell carcinoma [Fatal]
  - Pharyngeal neoplasm [Unknown]
  - Tumour haemorrhage [Fatal]
  - Mediastinal disorder [Unknown]
  - Richter^s syndrome [Fatal]
  - Lymphadenopathy [Unknown]
  - Soft tissue swelling [Unknown]

NARRATIVE: CASE EVENT DATE: 20180621
